FAERS Safety Report 9969415 (Version 1)
Quarter: 2014Q1

REPORT INFORMATION
  Report Type: Spontaneous
  Country: US (occurrence: JP)
  Receive Date: 20140306
  Receipt Date: 20140306
  Transmission Date: 20141002
  Serious: Yes (Death, Other)
  Sender: FDA-Public Use
  Company Number: 2014SP001027

PATIENT
  Age: 84 Year
  Sex: Female

DRUGS (3)
  1. METHOTREXATE [Suspect]
     Indication: RHEUMATOID ARTHRITIS
  2. PREDNISOLONE [Suspect]
     Indication: RHEUMATOID ARTHRITIS
  3. MIZORIBINE [Concomitant]
     Indication: RHEUMATOID ARTHRITIS

REACTIONS (4)
  - Herpes zoster disseminated [Fatal]
  - Dermatitis bullous [Not Recovered/Not Resolved]
  - Ulcer [Not Recovered/Not Resolved]
  - Immunosuppression [Unknown]
